FAERS Safety Report 22124058 (Version 10)
Quarter: 2024Q2

REPORT INFORMATION
  Report Type: Report from Study
  Country: US (occurrence: US)
  Receive Date: 20230322
  Receipt Date: 20240612
  Transmission Date: 20240716
  Serious: Yes (Other)
  Sender: FDA-Public Use
  Company Number: US-002147023-NVSC2023US060860

PATIENT
  Age: 43 Year
  Sex: Female

DRUGS (2)
  1. KESIMPTA [Suspect]
     Active Substance: OFATUMUMAB
     Indication: Multiple sclerosis
     Dosage: 20 MG, QMO
     Route: 058
     Dates: start: 20230114
  2. KESIMPTA [Suspect]
     Active Substance: OFATUMUMAB
     Dosage: 20 MG, QMO
     Route: 058
     Dates: start: 20230612

REACTIONS (14)
  - Loss of consciousness [Unknown]
  - Multiple sclerosis [Unknown]
  - Pain in extremity [Unknown]
  - Pallor [Unknown]
  - Arthralgia [Unknown]
  - Cyanosis [Unknown]
  - Muscle spasms [Unknown]
  - Injection site pain [Unknown]
  - Feeling abnormal [Recovered/Resolved]
  - Head discomfort [Recovered/Resolved]
  - Product supply issue [Unknown]
  - Nausea [Unknown]
  - Memory impairment [Unknown]
  - Neuralgia [Unknown]

NARRATIVE: CASE EVENT DATE: 20230114
